FAERS Safety Report 6914994-3 (Version None)
Quarter: 2010Q3

REPORT INFORMATION
  Report Type: 
  Country: None (occurrence: None)
  Receive Date: 20100809
  Receipt Date: 20100802
  Transmission Date: 20110219
  Serious: Yes (Hospitalization)
  Sender: FDA-Public Use
  Company Number: CHNY2010DE00484

PATIENT
  Age: 44 Year
  Sex: Male

DRUGS (1)
  1. DEXTROMETHORPHAN HYDROBROMIDE [Suspect]
     Dosage: 1800 MG, QD

REACTIONS (11)
  - ACTIVITIES OF DAILY LIVING IMPAIRED [None]
  - DRUG ABUSE [None]
  - DRUG DEPENDENCE [None]
  - DRUG DETOXIFICATION [None]
  - DRUG SCREEN POSITIVE [None]
  - HYPERHIDROSIS [None]
  - HYPERTENSION [None]
  - INTENTIONAL DRUG MISUSE [None]
  - NAUSEA [None]
  - TACHYCARDIA [None]
  - WITHDRAWAL SYNDROME [None]
